FAERS Safety Report 8433761 (Version 2)
Quarter: 2012Q4

REPORT INFORMATION
  Report Type: 
  Country: BG (occurrence: BG)
  Receive Date: 20120229
  Receipt Date: 20121001
  Transmission Date: 20130627
  Serious: Yes (Hospitalization, Other)
  Sender: FDA-Public Use
  Company Number: PHHY2012BG016834

PATIENT
  Age: 78 Year
  Sex: Male

DRUGS (1)
  1. ZOMETA [Suspect]
     Dosage: 4 mg, once a month

REACTIONS (9)
  - Osteonecrosis of jaw [Unknown]
  - Exposed bone in jaw [Unknown]
  - Bone lesion [Unknown]
  - Pain in jaw [Recovered/Resolved]
  - Impaired healing [Unknown]
  - Osteitis [Recovered/Resolved]
  - Mucosal inflammation [Unknown]
  - Purulent discharge [Recovered/Resolved]
  - White blood cell count increased [Unknown]
